FAERS Safety Report 10688073 (Version 1)
Quarter: 2014Q4

REPORT INFORMATION
  Report Type: Spontaneous
  Country: US (occurrence: None)
  Receive Date: 20141231
  Receipt Date: 20141231
  Transmission Date: 20150529
  Serious: Yes (Hospitalization)
  Sender: FDA-Public Use
  Company Number: None

PATIENT
  Age: 75 Year
  Sex: Male
  Weight: 94.1 kg

DRUGS (1)
  1. ISOSORBIDE MONONITRATE. [Suspect]
     Active Substance: ISOSORBIDE MONONITRATE
     Indication: ANGINA PECTORIS
     Route: 048
     Dates: start: 20080626, end: 20141020

REACTIONS (4)
  - Dizziness [None]
  - Headache [None]
  - Orthostatic hypotension [None]
  - Presyncope [None]

NARRATIVE: CASE EVENT DATE: 20141019
